FAERS Safety Report 20895116 (Version 1)
Quarter: 2022Q2

REPORT INFORMATION
  Report Type: Spontaneous
  Country: DE (occurrence: None)
  Receive Date: 20220531
  Receipt Date: 20220531
  Transmission Date: 20220720
  Serious: Yes (Hospitalization)
  Sender: FDA-Public Use
  Company Number: 2022A194022

PATIENT
  Age: 59 Year
  Sex: Female
  Weight: 90 kg

DRUGS (1)
  1. CILGAVIMAB\TIXAGEVIMAB [Suspect]
     Active Substance: CILGAVIMAB\TIXAGEVIMAB
     Dosage: 1.0DF UNKNOWN
     Route: 030
     Dates: start: 20220325

REACTIONS (1)
  - Neuritis [Unknown]

NARRATIVE: CASE EVENT DATE: 20220401
